FAERS Safety Report 21315129 (Version 1)
Quarter: 2022Q3

REPORT INFORMATION
  Report Type: Spontaneous
  Country: US (occurrence: US)
  Receive Date: 20220909
  Receipt Date: 20220909
  Transmission Date: 20221027
  Serious: Yes (Death, Other)
  Sender: FDA-Public Use
  Company Number: US-JAZZ-2022-US-028975

PATIENT
  Age: 63 Year
  Sex: Male

DRUGS (1)
  1. ZEPZELCA [Suspect]
     Active Substance: LURBINECTEDIN
     Indication: Acute myeloid leukaemia
     Dosage: 3 MILLIGRAM, DAYS 1-3
     Route: 042

REACTIONS (1)
  - Tumour lysis syndrome [Fatal]
